FAERS Safety Report 5223643-4 (Version None)
Quarter: 2007Q1

REPORT INFORMATION
  Report Type: 
  Country: None (occurrence: None)
  Receive Date: 20070125
  Receipt Date: 20070112
  Transmission Date: 20070707
  Serious: Yes (Other)
  Sender: FDA-Public Use
  Company Number: DEWYE156515JAN07

PATIENT

DRUGS (2)
  1. VENLAFAXINE HCL [Suspect]
     Dosage: 150 MG
  2. MIRTAZAPINE [Concomitant]

REACTIONS (1)
  - EPILEPSY [None]
